FAERS Safety Report 7198379-3 (Version None)
Quarter: 2010Q4

REPORT INFORMATION
  Report Type: 
  Country: None (occurrence: None)
  Receive Date: 20101227
  Receipt Date: 20101217
  Transmission Date: 20110411
  Serious: Yes (Death, Hospitalization, Other)
  Sender: FDA-Public Use
  Company Number: JP-BRISTOL-MYERS SQUIBB COMPANY-15406069

PATIENT
  Age: 75 Year
  Sex: Male

DRUGS (7)
  1. MITOMYCIN [Suspect]
     Indication: METASTASES TO LIVER
     Dosage: FORM: INJECTION; 10 TIMES.
     Route: 013
  2. FLUOROURACIL [Suspect]
     Indication: METASTASES TO LIVER
     Dosage: 5-FU INJECTION 250 KYOWA; 6 TIMES.
     Route: 013
  3. FOLINIC ACID [Suspect]
  4. OXALIPLATIN [Suspect]
  5. IRINOTECAN HCL [Suspect]
  6. BEVACIZUMAB [Suspect]
  7. FLUOROURACIL [Suspect]

REACTIONS (4)
  - ANAEMIA [None]
  - BILOMA [None]
  - DUODENAL ULCER HAEMORRHAGE [None]
  - SEPSIS [None]
